FAERS Safety Report 8394620-X (Version None)
Quarter: 2012Q2

REPORT INFORMATION
  Report Type: 
  Country: None (occurrence: None)
  Receive Date: 20120530
  Receipt Date: 20120522
  Transmission Date: 20120825
  Serious: Yes (Hospitalization)
  Sender: FDA-Public Use
  Company Number: CA-JNJFOC-20120516930

PATIENT
  Sex: Male
  Weight: 113.6 kg

DRUGS (7)
  1. PREDNISONE TAB [Concomitant]
     Route: 065
  2. PLAQUENIL [Concomitant]
     Route: 065
  3. COZAAR [Concomitant]
     Route: 065
  4. SYNTHROID [Concomitant]
     Route: 065
  5. OMEPRAZOLE (PRISOLEC) [Concomitant]
     Route: 065
  6. REMICADE [Suspect]
     Indication: RHEUMATOID ARTHRITIS
     Dosage: LOADING DOSE
     Route: 042
     Dates: start: 20120404
  7. IRON SUPPLEMENTS [Concomitant]
     Route: 065

REACTIONS (2)
  - LUNG INFECTION [None]
  - CHRONIC OBSTRUCTIVE PULMONARY DISEASE [None]
